FAERS Safety Report 7442375-5 (Version None)
Quarter: 2011Q2

REPORT INFORMATION
  Report Type: 
  Country: None (occurrence: None)
  Receive Date: 20110428
  Receipt Date: 20110426
  Transmission Date: 20111010
  Serious: Yes (Other)
  Sender: FDA-Public Use
  Company Number: BR-ROCHE-753778

PATIENT
  Sex: Female
  Weight: 48 kg

DRUGS (3)
  1. ACETAMINOPHEN [Concomitant]
     Indication: PAIN
     Route: 048
     Dates: start: 20100201
  2. RIVOTRIL [Suspect]
     Indication: SEDATIVE THERAPY
     Dosage: DOSE: 2.5 MG/ML; 3 DROPS IN THE MORNING, 3 DROPS IN THE AFTERNOON AND 3 DROPS AT NIGHT
     Route: 048
     Dates: start: 20010101
  3. OMEPRAZOLE [Concomitant]
     Dosage: 1 TAB IN THE MORNING
     Route: 048
     Dates: start: 20100201

REACTIONS (3)
  - AGITATION [None]
  - NERVOUSNESS [None]
  - MULTIPLE MYELOMA [None]
